FAERS Safety Report 5751050-4 (Version None)
Quarter: 2008Q2

REPORT INFORMATION
  Report Type: 
  Country: None (occurrence: None)
  Receive Date: 20080528
  Receipt Date: 20080522
  Transmission Date: 20081010
  Serious: Yes (Death, Hospitalization)
  Sender: FDA-Public Use
  Company Number: JP-AVENTIS-200811427JP

PATIENT
  Age: 72 Year
  Sex: Male

DRUGS (12)
  1. TAXOTERE [Suspect]
     Indication: NON-SMALL CELL LUNG CANCER
     Route: 041
     Dates: start: 20080428, end: 20080428
  2. POLARAMINE [Concomitant]
     Indication: PREMEDICATION
  3. DECADRON PHOSPHATE [Concomitant]
     Indication: PREMEDICATION
  4. KYTRIL                             /01178101/ [Concomitant]
     Indication: PREMEDICATION
  5. TAGAMET [Concomitant]
     Indication: PREMEDICATION
  6. CONIEL [Concomitant]
  7. LIPITOR [Concomitant]
  8. FAMOTIDINE [Concomitant]
  9. ASPIRIN [Concomitant]
  10. MAINTATE [Concomitant]
  11. CODEINE SUL TAB [Concomitant]
  12. MAGLAX [Concomitant]

REACTIONS (2)
  - FEBRILE NEUTROPENIA [None]
  - GASTROINTESTINAL HAEMORRHAGE [None]
